FAERS Safety Report 9797192 (Version 2)
Quarter: 2014Q1

REPORT INFORMATION
  Report Type: Spontaneous
  Country: FR (occurrence: None)
  Receive Date: 20131230
  Receipt Date: 20140115
  Transmission Date: 20141002
  Serious: Yes (Hospitalization, Other)
  Sender: FDA-Public Use
  Company Number: HRA-MET20130200

PATIENT
  Age: 67 Year
  Sex: Female

DRUGS (2)
  1. METOPIRONE [Suspect]
     Indication: ADRENOCORTICAL CARCINOMA
     Dosage: 2000 MG (250 MG, 8 IN 1 D)
     Route: 048
     Dates: start: 20131127, end: 20131127
  2. HYDROCORTISONE [Concomitant]

REACTIONS (10)
  - Malaise [None]
  - Tremor [None]
  - Confusional state [None]
  - Vertigo [None]
  - Hypotension [None]
  - Adrenal insufficiency [None]
  - Drug effect increased [None]
  - Blood cortisol increased [None]
  - Blood cortisol decreased [None]
  - Tremor [None]
